FAERS Safety Report 11790644 (Version 2)
Quarter: 2015Q4

REPORT INFORMATION
  Report Type: Report from Study
  Country: CA (occurrence: CA)
  Receive Date: 20151201
  Receipt Date: 20151203
  Transmission Date: 20160305
  Serious: Yes (Other)
  Sender: FDA-Public Use
  Company Number: CA-GILEAD-2015-0174694

PATIENT
  Age: 70 Year
  Sex: Female

DRUGS (11)
  1. IDELALISIB [Suspect]
     Active Substance: IDELALISIB
     Indication: NON-HODGKIN^S LYMPHOMA UNSPECIFIED HISTOLOGY INDOLENT
     Dosage: 150 MG, BID
     Route: 048
     Dates: start: 20150430, end: 20150915
  2. IDELALISIB [Suspect]
     Active Substance: IDELALISIB
     Dosage: UNK
     Route: 048
     Dates: start: 201511
  3. LYRICA [Concomitant]
     Active Substance: PREGABALIN
  4. LIPITOR [Concomitant]
     Active Substance: ATORVASTATIN CALCIUM
  5. DILANTIN [Concomitant]
     Active Substance: PHENYTOIN
  6. IDELALISIB [Suspect]
     Active Substance: IDELALISIB
     Dosage: UNK
     Route: 065
     Dates: start: 20150421, end: 2015
  7. MONOCOR [Concomitant]
     Active Substance: BISOPROLOL FUMARATE
  8. PLAVIX [Concomitant]
     Active Substance: CLOPIDOGREL BISULFATE
  9. IDELALISIB [Suspect]
     Active Substance: IDELALISIB
     Dosage: 100 MG, UNK
     Route: 048
     Dates: start: 20150928
  10. PANTOLOC                           /01263204/ [Concomitant]
     Active Substance: PANTOPRAZOLE SODIUM
  11. NITRO PASTE [Concomitant]

REACTIONS (13)
  - Pyrexia [Unknown]
  - Blood count abnormal [Unknown]
  - Lymphoma transformation [Unknown]
  - Pruritus [Recovered/Resolved]
  - Pyrexia [Unknown]
  - Unevaluable event [Unknown]
  - Pneumonitis [Recovered/Resolved]
  - Fatigue [Unknown]
  - Pyrexia [Unknown]
  - Pneumonia [Recovered/Resolved]
  - Rash [Recovered/Resolved with Sequelae]
  - Unevaluable event [Unknown]
  - Nasopharyngitis [Unknown]

NARRATIVE: CASE EVENT DATE: 2015
